FAERS Safety Report 6369022-8 (Version None)
Quarter: 2009Q3

REPORT INFORMATION
  Report Type: 
  Country: None (occurrence: None)
  Receive Date: 20090922
  Receipt Date: 20090824
  Transmission Date: 20100115
  Serious: Yes (Death, Other)
  Sender: FDA-Public Use
  Company Number: US-BAXTER-2009BH008174

PATIENT
  Age: 78 Year
  Sex: Male
  Weight: 52 kg

DRUGS (15)
  1. HEPARIN SODIUM INJECTION [Suspect]
     Indication: ANGIOGRAM
     Route: 014
     Dates: start: 20080430
  2. HEPARIN SODIUM INJECTION [Suspect]
     Route: 014
     Dates: start: 20080430
  3. HEPARIN SODIUM INJECTION [Suspect]
     Route: 014
     Dates: start: 20080430
  4. MECLIZINE [Concomitant]
     Indication: DRUG USE FOR UNKNOWN INDICATION
     Route: 048
  5. ASPIRIN [Concomitant]
     Indication: DRUG USE FOR UNKNOWN INDICATION
     Route: 048
  6. AVAPRO [Concomitant]
     Indication: DRUG USE FOR UNKNOWN INDICATION
     Route: 048
  7. IMDUR [Concomitant]
     Indication: DRUG USE FOR UNKNOWN INDICATION
     Route: 048
  8. LIPITOR [Concomitant]
     Indication: DRUG USE FOR UNKNOWN INDICATION
     Route: 048
  9. LOTREL [Concomitant]
     Indication: DRUG USE FOR UNKNOWN INDICATION
     Route: 048
  10. NITROSTAT [Concomitant]
     Indication: CHEST PAIN
     Route: 060
  11. PLAVIX [Concomitant]
     Indication: DRUG USE FOR UNKNOWN INDICATION
     Route: 048
  12. PRILOSEC [Concomitant]
     Indication: DRUG USE FOR UNKNOWN INDICATION
     Route: 048
  13. HEMOCYTE TABLET [Concomitant]
     Indication: DRUG USE FOR UNKNOWN INDICATION
     Route: 048
  14. IMDUR [Concomitant]
     Route: 048
  15. CHANTIX [Concomitant]
     Indication: EX-TOBACCO USER
     Route: 065

REACTIONS (19)
  - ABDOMINAL PAIN [None]
  - ANAEMIA [None]
  - BRADYCARDIA [None]
  - CEREBROVASCULAR DISORDER [None]
  - CHEST PAIN [None]
  - CHRONIC OBSTRUCTIVE PULMONARY DISEASE [None]
  - CORONARY ARTERY DISEASE [None]
  - ECCHYMOSIS [None]
  - HYPERSENSITIVITY [None]
  - HYPOTENSION [None]
  - LIVEDO RETICULARIS [None]
  - MULTI-ORGAN FAILURE [None]
  - PERICARDIAL EFFUSION [None]
  - PERIPHERAL ARTERIAL OCCLUSIVE DISEASE [None]
  - RENAL FAILURE [None]
  - RESPIRATORY ARREST [None]
  - RETROPERITONEAL HAEMATOMA [None]
  - SEPSIS [None]
  - SHOCK [None]
